FAERS Safety Report 8612485-5 (Version None)
Quarter: 2012Q3

REPORT INFORMATION
  Report Type: 
  Country: None (occurrence: None)
  Receive Date: 20120822
  Receipt Date: 20120820
  Transmission Date: 20120928
  Serious: No
  Sender: FDA-Public Use
  Company Number: US-TEVA-355129USA

PATIENT
  Sex: Female
  Weight: 54.026 kg

DRUGS (2)
  1. PLAN B ONE-STEP [Suspect]
     Indication: POST COITAL CONTRACEPTION
     Dosage: 1.5 MILLIGRAM DAILY;
     Route: 048
     Dates: start: 20120810, end: 20120810
  2. BACTRIM [Concomitant]
     Indication: GINGIVAL INFECTION
     Route: 048
     Dates: start: 20120809, end: 20120818

REACTIONS (3)
  - BREAST SWELLING [None]
  - ABDOMINAL DISTENSION [None]
  - MENSTRUATION IRREGULAR [None]
